FAERS Safety Report 9163248 (Version 1)
Quarter: 2013Q1

REPORT INFORMATION
  Report Type: Spontaneous
  Country: US (occurrence: None)
  Receive Date: 20130313
  Receipt Date: 20130313
  Transmission Date: 20140127
  Serious: No
  Sender: FDA-Public Use
  Company Number: None

PATIENT
  Age: 61 Year
  Sex: Female
  Weight: 62.6 kg

DRUGS (1)
  1. TEMAZEPAM [Suspect]
     Indication: SLEEP DISORDER
     Dosage: 1 CAPSULE AT BEDTIME PO
     Route: 048
     Dates: start: 20130201, end: 20130228

REACTIONS (3)
  - Balance disorder [None]
  - Memory impairment [None]
  - Aphasia [None]
